FAERS Safety Report 9444123 (Version 1)
Quarter: 2013Q3

REPORT INFORMATION
  Report Type: Spontaneous
  Country: US (occurrence: US)
  Receive Date: 20130729
  Receipt Date: 20130729
  Transmission Date: 20140515
  Serious: Yes (Hospitalization)
  Sender: FDA-Public Use
  Company Number: GR 13-024

PATIENT
  Age: 19 Year
  Sex: Female

DRUGS (8)
  1. ALLERGENIC EXTRACTS [Suspect]
     Indication: HYPERSENSITIVITY
     Route: 058
     Dates: start: 201001
  2. ELAVIL [Concomitant]
  3. MONTELUKAST [Concomitant]
  4. NASONEX [Concomitant]
  5. PROZAC [Concomitant]
  6. FLORASTER [Concomitant]
  7. ALLEGRA [Concomitant]
  8. ZYRTEC [Concomitant]

REACTIONS (2)
  - Drug intolerance [None]
  - Angioedema [None]
